FAERS Safety Report 8882999 (Version 1)
Quarter: 2012Q4

REPORT INFORMATION
  Report Type: 
  Country: FR (occurrence: FR)
  Receive Date: 20121102
  Receipt Date: 20121102
  Transmission Date: 20130627
  Serious: Yes (Death, Life-Threatening, Hospitalization)
  Sender: FDA-Public Use
  Company Number: PHHY2012FR098799

PATIENT
  Age: 69 Year
  Sex: Female

DRUGS (14)
  1. GLIVEC [Suspect]
     Indication: CHRONIC MYELOID LEUKAEMIA
     Dosage: 300 mg, daily
     Route: 048
     Dates: start: 2003
  2. KARDEGIC [Concomitant]
     Dosage: 75 mg, daily
  3. TRIATEC [Concomitant]
     Dosage: UNK UKN, UNK, 5 mg in the morning and 2.5 mg at night
  4. CARDENSIEL [Concomitant]
     Dosage: 5 mg, BID
  5. ALDACTONE [Concomitant]
     Dosage: 12.5 mg, daily
  6. ZOCOR [Concomitant]
     Dosage: 20 mg, daily
  7. LASILIX [Concomitant]
     Dosage: UNK UKN, UNK, 40 mg in the morning and 20 mg at midday
  8. INEXIUM [Concomitant]
     Dosage: 20 mg, daily
  9. NOVONORM [Concomitant]
     Dosage: 2 mg, TID
  10. NEOMERCAZOLE [Concomitant]
     Dosage: 10 mg, daily
  11. TARDYFERON [Concomitant]
     Dosage: 80 mg, BID
  12. STABLON [Concomitant]
     Dosage: 1 DF, daily
  13. LYRICA [Concomitant]
     Dosage: 50 mg, daily
  14. LEVEMIR [Concomitant]

REACTIONS (3)
  - Pulmonary hypertension [Fatal]
  - Lymphangiosis carcinomatosa [Unknown]
  - Respiratory distress [Unknown]
